FAERS Safety Report 18236245 (Version 4)
Quarter: 2021Q1

REPORT INFORMATION
  Report Type: Report from Study
  Country: None (occurrence: US)
  Receive Date: 20200906
  Receipt Date: 20210221
  Transmission Date: 20210419
  Serious: Yes (Other)
  Sender: FDA-Public Use
  Company Number: US-ABBVIE-20K-163-3553728-00

PATIENT
  Age: 74 Year
  Sex: Male
  Weight: 136.2 kg

DRUGS (2)
  1. RINVOQ [Suspect]
     Active Substance: UPADACITINIB
     Route: 048
  2. RINVOQ [Suspect]
     Active Substance: UPADACITINIB
     Indication: RHEUMATOID ARTHRITIS
     Route: 048
     Dates: start: 201911

REACTIONS (10)
  - Fall [Unknown]
  - Ankylosing spondylitis [Unknown]
  - Pain [Unknown]
  - Basal cell carcinoma [Recovering/Resolving]
  - Cardiac pacemaker insertion [Unknown]
  - Surgery [Unknown]
  - Back injury [Unknown]
  - Back pain [Unknown]
  - Fatigue [Unknown]
  - Tooth fracture [Unknown]

NARRATIVE: CASE EVENT DATE: 202006
